FAERS Safety Report 19230330 (Version 2)
Quarter: 2021Q2

REPORT INFORMATION
  Report Type: Spontaneous
  Country: US (occurrence: US)
  Receive Date: 20210507
  Receipt Date: 20210604
  Transmission Date: 20210717
  Serious: Yes (Hospitalization)
  Sender: FDA-Public Use
  Company Number: US-ALNYLAM PHARMACEUTICALS, INC.-ALN-2021-001050

PATIENT

DRUGS (2)
  1. TAFAMIDIS [Concomitant]
     Active Substance: TAFAMIDIS MEGLUMINE
     Indication: AMYLOIDOSIS
  2. ONPATTRO [Suspect]
     Active Substance: PATISIRAN SODIUM
     Indication: HEREDITARY NEUROPATHIC AMYLOIDOSIS
     Dosage: UNK
     Route: 042
     Dates: start: 201508

REACTIONS (11)
  - Chronic kidney disease [Unknown]
  - Corneal disorder [Unknown]
  - Weight fluctuation [Unknown]
  - Urinary cystectomy [Unknown]
  - Neuralgia [Not Recovered/Not Resolved]
  - Autonomic neuropathy [Unknown]
  - Urinary tract infection [Unknown]
  - Vesicoureteric reflux [Unknown]
  - Gait inability [Unknown]
  - Keratitis [Unknown]
  - Optic neuropathy [Not Recovered/Not Resolved]

NARRATIVE: CASE EVENT DATE: 202008
